FAERS Safety Report 7761538-2 (Version None)
Quarter: 2011Q3

REPORT INFORMATION
  Report Type: 
  Country: None (occurrence: None)
  Receive Date: 20110920
  Receipt Date: 20110906
  Transmission Date: 20111222
  Serious: Yes (Hospitalization)
  Sender: FDA-Public Use
  Company Number: JP-TYCO HEALTHCARE/MALLINCKRODT-T201101693

PATIENT
  Sex: Male
  Weight: 64.8 kg

DRUGS (21)
  1. METHADONE HCL [Suspect]
     Indication: CANCER PAIN
     Dosage: 80 MG, QD
     Route: 048
     Dates: start: 20110827, end: 20110828
  2. OXYCODONE HCL [Suspect]
     Indication: CANCER PAIN
     Dosage: 10 MG PRN
     Dates: end: 20110828
  3. LAXOBERON [Concomitant]
     Indication: CONSTIPATION
     Dosage: 10-20 DROPS PER TIME, PRN
     Dates: start: 20110623, end: 20110828
  4. LASIX [Concomitant]
     Dosage: 80 MG, QD
     Dates: start: 20110805, end: 20110828
  5. GLYCERIN ENEMA [Concomitant]
     Indication: CONSTIPATION
     Dosage: 60 ML, PRN
     Dates: start: 20110825
  6. METHADONE HCL [Suspect]
     Dosage: 30 MG, QD
     Route: 048
     Dates: start: 20110723, end: 20110729
  7. NEW LECICARBON [Concomitant]
     Indication: CONSTIPATION
     Dosage: PRN
     Dates: start: 20110623
  8. METHADONE HCL [Suspect]
     Dosage: 50 MG, QD
     Route: 048
     Dates: start: 20110805, end: 20110812
  9. OXYCODONE HCL [Suspect]
     Dosage: 5 MG PRN
     Dates: start: 20110729, end: 20110828
  10. ENSURE                             /00472201/ [Concomitant]
     Dosage: 750 ML, QD
     Dates: start: 20110826, end: 20110828
  11. METHADONE HCL [Suspect]
     Dosage: 20 MG, QD
     Route: 048
     Dates: start: 20110630, end: 20110722
  12. ZOMETA [Concomitant]
     Dosage: 4 MG ONCE MONTHLY
     Route: 042
     Dates: start: 20110729
  13. LANSOPRAZOLE [Concomitant]
     Dosage: 30 MG, QD
     Dates: end: 20110828
  14. METHADONE HCL [Suspect]
     Dosage: 15 MG, QD
     Route: 048
     Dates: start: 20110623, end: 20110629
  15. METHADONE HCL [Suspect]
     Dosage: 60 MG, QD
     Route: 048
     Dates: start: 20110813, end: 20110819
  16. MAGMITT [Concomitant]
     Dosage: 990 MG, QD
     Dates: start: 20110623, end: 20110828
  17. METHADONE HCL [Suspect]
     Dosage: 70 MG, QD
     Route: 048
     Dates: start: 20110820, end: 20110826
  18. UFT [Concomitant]
     Dosage: 200 MG, QD
     Dates: end: 20110828
  19. METHADONE HCL [Suspect]
     Dosage: 40 MG, QD
     Route: 048
     Dates: start: 20110730, end: 20110805
  20. FERROMIA                           /00023516/ [Concomitant]
     Dosage: 100 MG, QD
     Dates: end: 20110828
  21. ESTAZOLAM [Concomitant]
     Indication: INSOMNIA
     Dosage: 2 MG, PRN
     Dates: start: 20110826, end: 20110827

REACTIONS (1)
  - INTESTINAL OBSTRUCTION [None]
